FAERS Safety Report 10384105 (Version 2)
Quarter: 2014Q3

REPORT INFORMATION
  Report Type: Spontaneous
  Country: IE (occurrence: IE)
  Receive Date: 20140814
  Receipt Date: 20140915
  Transmission Date: 20150326
  Serious: Yes (Death)
  Sender: FDA-Public Use
  Company Number: IE-AMGEN-IRLSP2014061302

PATIENT
  Age: 79 Year
  Sex: Male

DRUGS (19)
  1. ZYVOX [Concomitant]
     Active Substance: LINEZOLID
  2. COMBIVENT [Concomitant]
     Active Substance: ALBUTEROL SULFATE\IPRATROPIUM BROMIDE
  3. PANADOL                            /00020001/ [Concomitant]
  4. AVODART [Concomitant]
     Active Substance: DUTASTERIDE
  5. ARANESP [Suspect]
     Active Substance: DARBEPOETIN ALFA
     Indication: RENAL FAILURE CHRONIC
     Dosage: 30 MUG, QWK
     Route: 058
     Dates: start: 20130925
  6. CIPROXIN                           /00697201/ [Concomitant]
  7. NEBILET [Concomitant]
     Active Substance: NEBIVOLOL
  8. MOVICOL                            /01749801/ [Concomitant]
  9. SPIRIVA [Concomitant]
     Active Substance: TIOTROPIUM BROMIDE MONOHYDRATE
  10. ASPIRIN                            /00002701/ [Concomitant]
     Active Substance: ASPIRIN
  11. CALOGEN                            /00371903/ [Concomitant]
  12. FUROSEMIDE. [Concomitant]
     Active Substance: FUROSEMIDE
  13. ONE ALPHA [Concomitant]
     Active Substance: ALFACALCIDOL
  14. ATORVASTATIN [Concomitant]
     Active Substance: ATORVASTATIN
  15. ALDACTONE [Concomitant]
     Active Substance: SPIRONOLACTONE
  16. FOLIC ACID. [Concomitant]
     Active Substance: FOLIC ACID
  17. PANTIUM                            /01116001/ [Concomitant]
  18. BENDROFLUMETHIAZIDE [Concomitant]
     Active Substance: BENDROFLUMETHIAZIDE
  19. BECLAZONE [Concomitant]

REACTIONS (2)
  - Cardiac failure [Fatal]
  - Lung neoplasm malignant [Fatal]
